FAERS Safety Report 6545834-2 (Version None)
Quarter: 2010Q1

REPORT INFORMATION
  Report Type: 
  Country: None (occurrence: None)
  Receive Date: 20100121
  Receipt Date: 20100113
  Transmission Date: 20100710
  Serious: Yes (Hospitalization)
  Sender: FDA-Public Use
  Company Number: BE-ELI_LILLY_AND_COMPANY-BE200911007041

PATIENT
  Sex: Male

DRUGS (8)
  1. BYETTA [Suspect]
     Indication: TYPE 2 DIABETES MELLITUS
     Dosage: 5 UG, 2/D
     Dates: start: 20090701, end: 20090901
  2. BYETTA [Suspect]
     Dosage: 10 UG, 2/D
     Dates: start: 20090901, end: 20090101
  3. LIPITOR [Concomitant]
     Dosage: UNK, UNKNOWN
     Dates: start: 20090701
  4. DIAMICRON [Concomitant]
     Dosage: UNK, UNKNOWN
     Dates: start: 20090701
  5. GLUCOPHAGE [Concomitant]
     Dosage: 850 MG, 3/D
     Dates: start: 20090701
  6. CARDIOASPIRINE [Concomitant]
     Dosage: UNK, UNKNOWN
     Dates: start: 20090701
  7. MEDROL [Concomitant]
     Indication: ARTHRITIS
     Dosage: UNK, UNKNOWN
     Dates: start: 20090901
  8. LEDERTREXATE [Concomitant]
     Indication: PSORIASIS
     Dosage: UNK, UNKNOWN
     Dates: start: 20090901

REACTIONS (7)
  - C-REACTIVE PROTEIN INCREASED [None]
  - CHILLS [None]
  - DIARRHOEA [None]
  - HYPERGLYCAEMIA [None]
  - JOINT STIFFNESS [None]
  - STEATORRHOEA [None]
  - WEIGHT DECREASED [None]
